FAERS Safety Report 23934656 (Version 5)
Quarter: 2025Q1

REPORT INFORMATION
  Report Type: Spontaneous
  Country: US (occurrence: US)
  Receive Date: 20240603
  Receipt Date: 20250318
  Transmission Date: 20250409
  Serious: No
  Sender: NOVARTIS
  Company Number: US-002147023-NVSC2024US116256

PATIENT

DRUGS (1)
  1. KESIMPTA [Suspect]
     Active Substance: OFATUMUMAB
     Indication: Relapsing-remitting multiple sclerosis
     Route: 065

REACTIONS (6)
  - COVID-19 [Unknown]
  - Haemorrhage [Unknown]
  - Anxiety [Unknown]
  - Accidental exposure to product [Unknown]
  - Device defective [Unknown]
  - Alopecia [Unknown]
